FAERS Safety Report 16200916 (Version 4)
Quarter: 2019Q2

REPORT INFORMATION
  Report Type: Spontaneous
  Country: US (occurrence: US)
  Receive Date: 20190416
  Receipt Date: 20190520
  Transmission Date: 20190711
  Serious: Yes (Hospitalization, Other)
  Sender: FDA-Public Use
  Company Number: US-AMGEN-USASP2019058208

PATIENT
  Age: 59 Year
  Sex: Male
  Weight: 112.93 kg

DRUGS (4)
  1. HUMIRA [Concomitant]
     Active Substance: ADALIMUMAB
     Indication: PSORIASIS
     Dosage: 80 MILLIGRAM, Q2WK
     Route: 058
     Dates: start: 20180611, end: 201809
  2. ENBREL [Suspect]
     Active Substance: ETANERCEPT
     Dosage: UNK UNK, QWK
     Route: 065
  3. ENBREL [Suspect]
     Active Substance: ETANERCEPT
     Indication: PSORIASIS
     Dosage: UNK
     Route: 065
  4. ENBREL [Suspect]
     Active Substance: ETANERCEPT
     Dosage: UNK UNK, 2 TIMES/WK
     Route: 065

REACTIONS (7)
  - Psoriasis [Unknown]
  - Dyspnoea [Unknown]
  - Hospitalisation [Recovered/Resolved]
  - Hypersensitivity [Unknown]
  - Pain in jaw [Unknown]
  - Gingival pain [Unknown]
  - Chest pain [Unknown]

NARRATIVE: CASE EVENT DATE: 2018
